FAERS Safety Report 9455607 (Version 1)
Quarter: 2013Q3

REPORT INFORMATION
  Report Type: Spontaneous
  Country: US (occurrence: US)
  Receive Date: 20130813
  Receipt Date: 20130813
  Transmission Date: 20140515
  Serious: No
  Sender: FDA-Public Use
  Company Number: US-PFIZER INC-2013233137

PATIENT
  Age: 69 Year
  Sex: Female
  Weight: 80.73 kg

DRUGS (1)
  1. TIKOSYN [Suspect]
     Dosage: UNK

REACTIONS (2)
  - Fatigue [Unknown]
  - Pharyngeal oedema [Unknown]
